FAERS Safety Report 25436131 (Version 1)
Quarter: 2025Q2

REPORT INFORMATION
  Report Type: Spontaneous
  Country: FR (occurrence: FR)
  Receive Date: 20250614
  Receipt Date: 20250614
  Transmission Date: 20250716
  Serious: Yes (Other)
  Sender: AUROBINDO
  Company Number: FR-SA-2025SA149892

PATIENT
  Age: 40 Year
  Sex: Male

DRUGS (2)
  1. OLANZAPINE [Suspect]
     Active Substance: OLANZAPINE
     Indication: Bipolar disorder
     Dosage: 10 MILLIGRAM, ONCE A DAY
  2. DEPAKOTE [Suspect]
     Active Substance: DIVALPROEX SODIUM
     Indication: Bipolar disorder

REACTIONS (1)
  - Dilated cardiomyopathy [Unknown]
